APPROVED DRUG PRODUCT: TACROLIMUS
Active Ingredient: TACROLIMUS
Strength: EQ 0.5MG BASE
Dosage Form/Route: CAPSULE;ORAL
Application: A091195 | Product #001 | TE Code: BX
Applicant: ACCORD HEALTHCARE INC
Approved: Aug 31, 2011 | RLD: No | RS: No | Type: RX